FAERS Safety Report 5743374-1 (Version None)
Quarter: 2008Q2

REPORT INFORMATION
  Report Type: 
  Country: None (occurrence: None)
  Receive Date: 20080515
  Receipt Date: 20080515
  Transmission Date: 20081010
  Serious: Yes (Disabling)
  Sender: FDA-Public Use
  Company Number: None

PATIENT
  Age: 72 Year
  Sex: Female
  Weight: 78.9259 kg

DRUGS (3)
  1. NITROFURANTOIN [Suspect]
     Indication: URINARY TRACT INFECTION
     Dosage: 100MG BID PO
     Route: 048
     Dates: start: 20080317, end: 20080318
  2. CLONIDINE [Concomitant]
  3. NABUMETONE [Concomitant]

REACTIONS (3)
  - DYSPNOEA [None]
  - RALES [None]
  - WHEEZING [None]
